FAERS Safety Report 4563357-7 (Version None)
Quarter: 2005Q1

REPORT INFORMATION
  Report Type: 
  Country: None (occurrence: None)
  Receive Date: 20050128
  Receipt Date: 20040218
  Transmission Date: 20050727
  Serious: No
  Sender: FDA-Public Use
  Company Number: US-GLAXOSMITHKLINE-A0498745A

PATIENT
  Age: 68 Year
  Sex: Male

DRUGS (5)
  1. BUPROPION HYDROCHLORIDE [Suspect]
     Indication: DEPRESSION
     Dosage: 75MG TWICE PER DAY
     Route: 048
     Dates: start: 20030101
  2. AVANDIA [Concomitant]
  3. ZOCOR [Concomitant]
  4. NAPROXEN [Concomitant]
  5. PREVACID [Concomitant]

REACTIONS (1)
  - NIGHT SWEATS [None]
